FAERS Safety Report 10355849 (Version 3)
Quarter: 2015Q3

REPORT INFORMATION
  Report Type: Report from Study
  Country: CA (occurrence: CA)
  Receive Date: 20140801
  Receipt Date: 20150724
  Transmission Date: 20151125
  Serious: Yes (Other)
  Sender: FDA-Public Use
  Company Number: CA-ABBVIE-14K-028-1264802-00

PATIENT
  Sex: Male
  Weight: 93.52 kg

DRUGS (6)
  1. HUMIRA [Suspect]
     Active Substance: ADALIMUMAB
     Dosage: RE-INDUCTION DOSE
     Route: 058
     Dates: start: 20140722, end: 20140722
  2. HUMIRA [Suspect]
     Active Substance: ADALIMUMAB
     Route: 058
     Dates: start: 2014, end: 20140830
  3. CELEXA [Concomitant]
     Active Substance: CITALOPRAM HYDROBROMIDE
     Indication: ANXIETY
     Route: 048
  4. HUMIRA [Suspect]
     Active Substance: ADALIMUMAB
     Indication: CROHN^S DISEASE
     Route: 058
     Dates: start: 20120309, end: 2014
  5. HUMIRA [Suspect]
     Active Substance: ADALIMUMAB
     Route: 058
     Dates: start: 2014
  6. HUMIRA [Suspect]
     Active Substance: ADALIMUMAB
     Route: 058
     Dates: start: 2014, end: 201407

REACTIONS (6)
  - Crohn^s disease [Recovering/Resolving]
  - Drug ineffective [Not Recovered/Not Resolved]
  - Joint injury [Unknown]
  - Malaise [Recovering/Resolving]
  - Malaise [Recovering/Resolving]
  - Arthritis infective [Recovered/Resolved]

NARRATIVE: CASE EVENT DATE: 2014
